FAERS Safety Report 23512403 (Version 1)
Quarter: 2024Q1

REPORT INFORMATION
  Report Type: Spontaneous
  Country: US (occurrence: None)
  Receive Date: 20240209
  Receipt Date: 20240209
  Transmission Date: 20240410
  Serious: Yes (Hospitalization, Disabling)
  Sender: FDA-Public Use
  Company Number: None

PATIENT
  Age: 82 Year
  Sex: Female
  Weight: 58.5 kg

DRUGS (3)
  1. CIPROFLOXACIN [Suspect]
     Active Substance: CIPROFLOXACIN
     Indication: Otitis media
     Dates: start: 20240123, end: 20240204
  2. LOSARTAN [Concomitant]
     Active Substance: LOSARTAN
  3. VITAMINS [Concomitant]
     Active Substance: VITAMINS

REACTIONS (9)
  - Hypoaesthesia [None]
  - Dysstasia [None]
  - Gait disturbance [None]
  - Coordination abnormal [None]
  - Muscular weakness [None]
  - Back pain [None]
  - Pain in extremity [None]
  - Arthralgia [None]
  - Blood pressure increased [None]

NARRATIVE: CASE EVENT DATE: 20240130
